FAERS Safety Report 17215518 (Version 1)
Quarter: 2019Q4

REPORT INFORMATION
  Report Type: Spontaneous
  Country: ES (occurrence: ES)
  Receive Date: 20191230
  Receipt Date: 20191230
  Transmission Date: 20200122
  Serious: Yes (Hospitalization)
  Sender: FDA-Public Use
  Company Number: ES-MYLANLABS-2019M1128141

PATIENT
  Age: 58 Year
  Sex: Female

DRUGS (8)
  1. INNOHEP [Suspect]
     Active Substance: TINZAPARIN SODIUM
     Indication: DEEP VEIN THROMBOSIS
     Dosage: 1 DOSAGE FORM, QD
     Route: 058
     Dates: start: 2018, end: 2018
  2. INNOHEP [Suspect]
     Active Substance: TINZAPARIN SODIUM
     Indication: VISCERAL VENOUS THROMBOSIS
     Dosage: UNK
  3. LORAZEPAM. [Concomitant]
     Active Substance: LORAZEPAM
     Indication: ANXIETY
     Dosage: 1 MILLIGRAM, BID (EVERY 12 HOURS)
     Route: 048
     Dates: start: 2018
  4. INNOHEP [Suspect]
     Active Substance: TINZAPARIN SODIUM
     Indication: CEREBROVASCULAR ACCIDENT
     Dosage: 1 DOSAGE FORM, QD
     Route: 058
     Dates: start: 2018
  5. PARACETAMOL [Concomitant]
     Active Substance: ACETAMINOPHEN
     Indication: PAIN
     Dosage: 1 GRAM, PRN (WHEN NEEDED)
     Route: 048
     Dates: start: 2018
  6. GEMCITABINE. [Suspect]
     Active Substance: GEMCITABINE
     Indication: CHOLANGIOCARCINOMA
     Dosage: 1000 MILLIGRAM/SQ. METER, CYCLE (ON DAYS 1 AND 8 OF EACH CYCLE OF 21 DAYS)
     Dates: start: 2018
  7. INNOHEP [Suspect]
     Active Substance: TINZAPARIN SODIUM
     Indication: PULMONARY EMBOLISM
     Dosage: 1 DOSAGE FORM, QD
     Route: 058
     Dates: start: 2018, end: 2018
  8. CISPLATIN. [Suspect]
     Active Substance: CISPLATIN
     Indication: CHOLANGIOCARCINOMA
     Dosage: 25 MILLIGRAM/SQ. METER, Q21D (FOR 3 CYCLES)
     Route: 042
     Dates: start: 2018, end: 2018

REACTIONS (4)
  - Drug ineffective [Unknown]
  - Visceral venous thrombosis [Recovering/Resolving]
  - Pulmonary embolism [Recovered/Resolved]
  - Cerebrovascular accident [Recovered/Resolved]
